FAERS Safety Report 8248719 (Version 2)
Quarter: 2012Q4

REPORT INFORMATION
  Report Type: Spontaneous
  Country: US (occurrence: None)
  Receive Date: 20111114
  Receipt Date: 20121019
  Transmission Date: 20130627
  Serious: Yes (Death, Other)
  Sender: FDA-Public Use
  Company Number: TPA2011A07190

PATIENT
  Age: 55 Year
  Sex: Male

DRUGS (4)
  1. ACTOS [Suspect]
     Indication: TYPE 2 DIABETES MELLITUS
     Dates: start: 20080708, end: 20101125
  2. METFORMIN (METFORMIN) [Concomitant]
  3. JANUVIA (SITAGLIPTIN PHOSPHATE) [Concomitant]
  4. VICTOZA (LIRAGLUTIDE) [Concomitant]

REACTIONS (3)
  - Bladder cancer [None]
  - Urinary tract infection [None]
  - Urinary tract obstruction [None]
